FAERS Safety Report 6546256-0 (Version None)
Quarter: 2010Q1

REPORT INFORMATION
  Report Type: 
  Country: None (occurrence: None)
  Receive Date: 20100122
  Receipt Date: 20100118
  Transmission Date: 20100710
  Serious: Yes (Death)
  Sender: FDA-Public Use
  Company Number: DE-BRISTOL-MYERS SQUIBB COMPANY-14939714

PATIENT
  Age: 56 Year
  Sex: Male
  Weight: 61 kg

DRUGS (5)
  1. CETUXIMAB [Suspect]
     Indication: HEAD AND NECK CANCER
     Route: 042
     Dates: start: 20091208, end: 20100112
  2. CISPLATIN [Suspect]
     Indication: HEAD AND NECK CANCER
     Route: 042
     Dates: start: 20091208, end: 20100105
  3. DOCETAXEL [Suspect]
     Indication: HEAD AND NECK CANCER
     Route: 042
     Dates: start: 20091208, end: 20100105
  4. TAVANIC [Concomitant]
     Dosage: ALSO RECEIVED FROM 08-DEC-2009 TO 17-DEC-2009.
     Route: 048
     Dates: start: 20100105, end: 20100114
  5. RAMIPRIL [Concomitant]
     Indication: HYPERTENSION
     Dosage: STARTED BEFORE STUDY RECRUITMENT.
     Route: 048

REACTIONS (1)
  - PULMONARY EMBOLISM [None]
